FAERS Safety Report 4636275-3 (Version None)
Quarter: 2005Q2

REPORT INFORMATION
  Report Type: 
  Country: None (occurrence: None)
  Receive Date: 20050415
  Receipt Date: 20040512
  Transmission Date: 20051028
  Serious: No
  Sender: FDA-Public Use
  Company Number: US-BRISTOL-MYERS SQUIBB COMPANY-12585972

PATIENT

DRUGS (1)
  1. CARBOPLATIN [Suspect]

REACTIONS (2)
  - DEAFNESS [None]
  - DIZZINESS [None]
